FAERS Safety Report 18591990 (Version 6)
Quarter: 2021Q2

REPORT INFORMATION
  Report Type: Spontaneous
  Country: US (occurrence: US)
  Receive Date: 20201208
  Receipt Date: 20210528
  Transmission Date: 20210717
  Serious: Yes (Other)
  Sender: FDA-Public Use
  Company Number: US-MALLINCKRODT-T202005640

PATIENT
  Age: 1 Year
  Sex: Male
  Weight: 13 kg

DRUGS (4)
  1. H.P. ACTHAR [Suspect]
     Active Substance: CORTICOTROPIN
     Indication: EYE MOVEMENT DISORDER
     Dosage: 0.5 MILLILITER, QOD
     Route: 030
     Dates: start: 202011, end: 2020
  2. H.P. ACTHAR [Suspect]
     Active Substance: CORTICOTROPIN
     Indication: NYSTAGMUS
     Dosage: 0.4 MILLILITER, QOD
     Route: 030
     Dates: start: 20210518
  3. H.P. ACTHAR [Suspect]
     Active Substance: CORTICOTROPIN
     Indication: GAIT INABILITY
  4. H.P. ACTHAR [Suspect]
     Active Substance: CORTICOTROPIN
     Indication: NEUROBLASTOMA
     Dosage: 0.5 MILLILITER, QD (40 UNITS)
     Route: 030
     Dates: start: 20201202

REACTIONS (10)
  - Hypersensitivity [Not Recovered/Not Resolved]
  - Eye disorder [Unknown]
  - Muscular weakness [Recovered/Resolved]
  - SARS-CoV-2 test [Unknown]
  - Middle insomnia [Not Recovered/Not Resolved]
  - Cushingoid [Recovered/Resolved]
  - Increased appetite [Not Recovered/Not Resolved]
  - Pollakiuria [Not Recovered/Not Resolved]
  - Skin discolouration [Unknown]
  - Fungal skin infection [Recovering/Resolving]

NARRATIVE: CASE EVENT DATE: 202012
